FAERS Safety Report 15194749 (Version 4)
Quarter: 2018Q4

REPORT INFORMATION
  Report Type: Spontaneous
  Country: DE (occurrence: DE)
  Receive Date: 20180725
  Receipt Date: 20181113
  Transmission Date: 20190204
  Serious: Yes (Other)
  Sender: FDA-Public Use
  Company Number: DE-PFIZER INC-2015195439

PATIENT
  Age: 78 Year
  Sex: Male

DRUGS (1)
  1. METHOTREXATE SODIUM. [Suspect]
     Active Substance: METHOTREXATE SODIUM
     Dosage: 10 MG, DAILY (40 MG IN TOTAL)

REACTIONS (7)
  - Pancytopenia [Recovered/Resolved]
  - Cystitis haemorrhagic [Recovered/Resolved]
  - Oesophagitis [Recovered/Resolved]
  - Mucosal inflammation [Recovered/Resolved]
  - Medication error [Recovered/Resolved]
  - Pneumonia [Recovered/Resolved]
  - Gastrointestinal haemorrhage [Recovered/Resolved]
